FAERS Safety Report 7376418-4 (Version None)
Quarter: 2011Q1

REPORT INFORMATION
  Report Type: 
  Country: None (occurrence: None)
  Receive Date: 20110325
  Receipt Date: 20110316
  Transmission Date: 20110831
  Serious: Yes (Hospitalization)
  Sender: FDA-Public Use
  Company Number: BR-ASTRAZENECA-2011SE15049

PATIENT
  Age: 69 Year
  Sex: Male
  Weight: 75 kg

DRUGS (9)
  1. CLOPIDOGREL [Concomitant]
     Route: 048
     Dates: start: 20090401
  2. SOMALGIN [Suspect]
     Route: 048
  3. SOMALGIN [Suspect]
     Route: 048
     Dates: start: 20090401, end: 20101201
  4. SIMVASTATIN [Concomitant]
     Route: 048
     Dates: start: 20090401
  5. ENALAPRIL MALEATE [Concomitant]
     Route: 048
     Dates: start: 20100901
  6. SELOZOK [Suspect]
     Indication: HYPERTENSION
     Route: 048
     Dates: start: 20100915
  7. OMEPRAZOLE [Suspect]
     Indication: GASTRIC DISORDER
     Route: 048
     Dates: start: 20080101, end: 20101201
  8. NUTRI CAL D [Concomitant]
     Indication: OSTEITIS DEFORMANS
     Route: 048
  9. MIACALCIT [Concomitant]
     Indication: OSTEITIS DEFORMANS
     Dosage: 200 EVERY OTHER DAY
     Route: 045
     Dates: start: 20080101

REACTIONS (10)
  - DIARRHOEA [None]
  - POLYP [None]
  - ABDOMINAL PAIN UPPER [None]
  - WRONG DRUG ADMINISTERED [None]
  - HYPOTHYROIDISM [None]
  - ANXIETY [None]
  - DEPRESSION [None]
  - DEVICE OCCLUSION [None]
  - ARTERIAL OCCLUSIVE DISEASE [None]
  - VOMITING [None]
